FAERS Safety Report 6369327-0 (Version None)
Quarter: 2009Q3

REPORT INFORMATION
  Report Type: 
  Country: None (occurrence: None)
  Receive Date: 20090916
  Receipt Date: 20090907
  Transmission Date: 20100115
  Serious: Yes (Death, Other)
  Sender: FDA-Public Use
  Company Number: 376192

PATIENT
  Age: 56 Year
  Sex: Male

DRUGS (9)
  1. METHOTREXATE [Suspect]
     Indication: PSORIATIC ARTHROPATHY
     Dosage: 2.5 MG
  2. MEFENAMIC ACID [Suspect]
     Indication: ARTHRITIS
  3. CLOPIDOGREL [Concomitant]
  4. (PYRIDOXINE) [Concomitant]
  5. RAMIPRIL [Concomitant]
  6. FAMOTIDINE [Concomitant]
  7. (METOPROLOL) [Concomitant]
  8. ISOSORBIDE DINITRATE [Concomitant]
  9. (ALFACALCIDOL) [Concomitant]

REACTIONS (15)
  - ACUTE CORONARY SYNDROME [None]
  - ALANINE AMINOTRANSFERASE INCREASED [None]
  - BLOOD ALBUMIN DECREASED [None]
  - BLOOD ALKALINE PHOSPHATASE INCREASED [None]
  - BLOOD BILIRUBIN INCREASED [None]
  - BLOOD FOLATE DECREASED [None]
  - DRUG INTERACTION [None]
  - DRUG TOXICITY [None]
  - ENTEROCOCCAL INFECTION [None]
  - FEBRILE NEUTROPENIA [None]
  - GENERAL PHYSICAL HEALTH DETERIORATION [None]
  - HEPATIC FUNCTION ABNORMAL [None]
  - PANCYTOPENIA [None]
  - SUPRAVENTRICULAR TACHYCARDIA [None]
  - VENTRICULAR TACHYCARDIA [None]
